FAERS Safety Report 5314679-3 (Version None)
Quarter: 2007Q2

REPORT INFORMATION
  Report Type: 
  Country: None (occurrence: None)
  Receive Date: 20070502
  Receipt Date: 20070424
  Transmission Date: 20071010
  Serious: Yes (Hospitalization)
  Sender: FDA-Public Use
  Company Number: US-AVENTIS-200713618GDDC

PATIENT
  Age: 17 Year
  Sex: Male
  Weight: 71 kg

DRUGS (7)
  1. TAXOTERE [Suspect]
     Indication: EWING'S SARCOMA
     Route: 042
     Dates: start: 20070416, end: 20070416
  2. GEMCITABINE HCL [Suspect]
     Indication: EWING'S SARCOMA
     Route: 042
     Dates: start: 20070416, end: 20070416
  3. DECADRON [Concomitant]
     Dosage: DOSE: UNK
     Dates: start: 20070415, end: 20070417
  4. FENTANYL [Concomitant]
     Dosage: DOSE: 100 MCG/HR
  5. MIRALAX [Concomitant]
     Route: 048
  6. OXYCODONE HCL [Concomitant]
     Dosage: DOSE: 20 MG AT BEDTIME
     Route: 048
  7. OXYCONTIN [Concomitant]
     Route: 048

REACTIONS (5)
  - ERYTHEMA [None]
  - LOCAL SWELLING [None]
  - MYOSITIS [None]
  - PAIN [None]
  - PYREXIA [None]
